FAERS Safety Report 20611286 (Version 2)
Quarter: 2022Q2

REPORT INFORMATION
  Report Type: Report from Study
  Country: US (occurrence: US)
  Receive Date: 20220318
  Receipt Date: 20220525
  Transmission Date: 20220721
  Serious: Yes (Hospitalization)
  Sender: FDA-Public Use
  Company Number: US-BIOGEN-2022BI01102607

PATIENT
  Sex: Female

DRUGS (1)
  1. TYSABRI [Suspect]
     Active Substance: NATALIZUMAB
     Indication: Multiple sclerosis
     Route: 065
     Dates: start: 20180427

REACTIONS (9)
  - Multiple sclerosis [Unknown]
  - Fall [Recovered/Resolved]
  - Head injury [Unknown]
  - Abdominal adhesions [Unknown]
  - Bone pain [Unknown]
  - Peripheral swelling [Unknown]
  - Pruritus [Unknown]
  - Headache [Unknown]
  - Diarrhoea [Unknown]

NARRATIVE: CASE EVENT DATE: 20210101
